FAERS Safety Report 4746960-0 (Version None)
Quarter: 2005Q3

REPORT INFORMATION
  Report Type: 
  Country: None (occurrence: None)
  Receive Date: 20050817
  Receipt Date: 20050810
  Transmission Date: 20060218
  Serious: Yes (Hospitalization)
  Sender: FDA-Public Use
  Company Number: US-JNJFOC-20050803416

PATIENT
  Sex: Male
  Weight: 65.77 kg

DRUGS (1)
  1. SANDOZ FENTANTYL TRANSDERMAL SYSTEM [Suspect]
     Route: 062
     Dates: start: 20050714, end: 20050718

REACTIONS (3)
  - ANGINA PECTORIS [None]
  - ARTERIAL OCCLUSIVE DISEASE [None]
  - DYSPNOEA [None]
